FAERS Safety Report 18051917 (Version 5)
Quarter: 2021Q3

REPORT INFORMATION
  Report Type: Spontaneous
  Country: AT (occurrence: AT)
  Receive Date: 20200721
  Receipt Date: 20210817
  Transmission Date: 20211014
  Serious: Yes (Hospitalization, Other)
  Sender: FDA-Public Use
  Company Number: AT-PFIZER INC-2020274716

PATIENT
  Age: 71 Year
  Sex: Female

DRUGS (11)
  1. PYRIDOSTIGMINE [Suspect]
     Active Substance: PYRIDOSTIGMINE
     Dosage: 60 MG
  2. AZATHIOPRINE. [Concomitant]
     Active Substance: AZATHIOPRINE
     Dosage: UNK
  3. RITUXIMAB. [Suspect]
     Active Substance: RITUXIMAB
     Dosage: 1000 MG
     Dates: start: 202001
  4. IMMUNOGLOBULIN HUMAN NORMAL [Suspect]
     Active Substance: HUMAN IMMUNOGLOBULIN G
     Dosage: 0.4 G/KG/DAY FOR 5 DAYS
     Route: 042
     Dates: start: 2020
  5. PIPERACILLIN/TAZOBACTAM [Suspect]
     Active Substance: PIPERACILLIN SODIUM\TAZOBACTAM SODIUM
     Indication: COVID-19
     Dosage: UNK
     Dates: start: 2020
  6. METHYLPREDNISOLONE SODIUM SUCCINATE. [Suspect]
     Active Substance: METHYLPREDNISOLONE SODIUM SUCCINATE
     Dosage: 20 MG, DAILY
  7. IMMUNOGLOBULIN HUMAN NORMAL [Suspect]
     Active Substance: HUMAN IMMUNOGLOBULIN G
     Indication: COVID-19
     Dosage: UNK
     Route: 042
     Dates: start: 201901
  8. METHYLPREDNISOLONE SODIUM SUCCINATE. [Suspect]
     Active Substance: METHYLPREDNISOLONE SODIUM SUCCINATE
     Indication: MUSCULAR WEAKNESS
     Dosage: 4 MG
  9. PYRIDOSTIGMINE [Suspect]
     Active Substance: PYRIDOSTIGMINE
     Indication: MUSCULAR WEAKNESS
     Dosage: 180 MG, (3X 60 MG)
  10. RITUXIMAB. [Suspect]
     Active Substance: RITUXIMAB
     Indication: MUSCULAR WEAKNESS
     Dosage: THIRD DOSE (1000 MG) ADMINISTERED IN EARLY JAN2020
     Dates: start: 201907
  11. PYRIDOSTIGMINE [Suspect]
     Active Substance: PYRIDOSTIGMINE
     Dosage: UNK
     Route: 048

REACTIONS (7)
  - COVID-19 pneumonia [Recovering/Resolving]
  - COVID-19 [Recovering/Resolving]
  - Intentional product use issue [Unknown]
  - Muscular weakness [Recovering/Resolving]
  - SARS-CoV-2 antibody test negative [Unknown]
  - Off label use [Unknown]
  - Urinary tract infection [Recovering/Resolving]

NARRATIVE: CASE EVENT DATE: 2020
